FAERS Safety Report 17280732 (Version 2)
Quarter: 2020Q1

REPORT INFORMATION
  Report Type: Spontaneous
  Country: US (occurrence: US)
  Receive Date: 20200117
  Receipt Date: 20200120
  Transmission Date: 20200409
  Serious: Yes (Hospitalization, Other)
  Sender: FDA-Public Use
  Company Number: US-009507513-2001USA005015

PATIENT
  Age: 3 Year
  Sex: Male
  Weight: 11.3 kg

DRUGS (19)
  1. NOXAFIL [Suspect]
     Active Substance: POSACONAZOLE
     Indication: FUNGAL INFECTION
     Dosage: 52 MILLIGRAM, 4 IN A DAY
     Route: 048
  2. SODIUM PHOSPHATE, DIBASIC [Concomitant]
     Active Substance: SODIUM PHOSPHATE, DIBASIC
     Indication: ELECTROLYTE SUBSTITUTION THERAPY
     Dosage: 20 MILLIEQUIVALENT, 2 IN 1 DAY
     Route: 048
  3. ACYCLOVIR. [Concomitant]
     Active Substance: ACYCLOVIR
     Indication: PROPHYLAXIS
     Dosage: 120 MILLIGRAM, 2 IN 1 DAY
     Route: 048
  4. PREDNISONE. [Concomitant]
     Active Substance: PREDNISONE
     Indication: CHRONIC GRAFT VERSUS HOST DISEASE
     Dosage: 4.5 MILLIGRAM, 2 IN 1 DAY
     Route: 048
     Dates: start: 20190207
  5. DIPHENHYDRAMINE. [Concomitant]
     Active Substance: DIPHENHYDRAMINE
     Indication: PRURITUS
     Dosage: 12 MILLIGRAM, Q6H, PRN
     Route: 048
  6. DESONIDE. [Concomitant]
     Active Substance: DESONIDE
     Indication: SKIN DISORDER
     Dosage: 0.05 PERCENT, BID TO FACE, GROIN AND FOLDS
     Route: 061
  7. IBRUTINIB [Concomitant]
     Active Substance: IBRUTINIB
     Indication: CHRONIC GRAFT VERSUS HOST DISEASE
     Dosage: 0.6 MILLILITER, 1 IN 1 DAY
     Route: 048
     Dates: start: 20190417
  8. PENICILLIN VK [Concomitant]
     Active Substance: PENICILLIN V POTASSIUM
     Indication: INFECTION PROPHYLAXIS
     Dosage: 250 MILLIGRAM, 2 IN 1 DAY
     Route: 048
  9. OMEPRAZOLE. [Concomitant]
     Active Substance: OMEPRAZOLE
     Indication: PROPHYLAXIS
     Dosage: 10 MILLIGRAM, 2 IN 1 DAY
     Route: 048
  10. CARBAMIDE PEROXIDE [Concomitant]
     Active Substance: CARBAMIDE PEROXIDE
     Indication: EXCESSIVE CERUMEN PRODUCTION
     Dosage: 5 GTT DROPS, QD, BOTH EARS, QPM
  11. AMLODIPINE [Concomitant]
     Active Substance: AMLODIPINE BESYLATE
     Indication: BLOOD PRESSURE ABNORMAL
     Dosage: UNK
     Route: 048
  12. BACTRIM [Concomitant]
     Active Substance: SULFAMETHOXAZOLE\TRIMETHOPRIM
     Indication: PROPHYLAXIS
     Dosage: 200-40 MG, BID, ONLY ON SATURDAY AND SUNDAY
     Route: 048
  13. PONARIS (FLUCONAZOLE) [Concomitant]
     Active Substance: FLUCONAZOLE
     Indication: EPISTAXIS
     Dosage: UNK, BID
     Route: 045
  14. CHOLECALCIFEROL [Concomitant]
     Active Substance: CHOLECALCIFEROL
     Indication: SUPPLEMENTATION THERAPY
     Dosage: 1000 UNIT, 1 IN 2 DAYS
     Route: 048
  15. TRIAMCINOLONE [Concomitant]
     Active Substance: TRIAMCINOLONE
     Indication: SKIN DISORDER
     Dosage: 0.1 PERCENT, BID TO TRUNK, 1 ARMS, LEGS
     Route: 061
  16. PREDNISONE. [Concomitant]
     Active Substance: PREDNISONE
     Dosage: 1.8 MILLIGRAM, 2 IN 1 DAY
     Route: 048
     Dates: start: 20190927
  17. PROTOPIC [Concomitant]
     Active Substance: TACROLIMUS
     Indication: SKIN DISORDER
     Dosage: 0.1 PERCENT, 2 IN 1 DAY
     Route: 061
  18. AQUAPHOR (LANOLIN ALCOHOLS (+) MINERAL OIL (+) PETROLATUM) [Concomitant]
     Indication: SKIN DISORDER
     Dosage: UNK, PRN
     Route: 061
  19. CITRIC ACID (+) SODIUM CITRATE [Concomitant]
     Active Substance: CITRIC ACID MONOHYDRATE\SODIUM CITRATE
     Indication: ELECTROLYTE SUBSTITUTION THERAPY
     Dosage: 5.5 MILLIEQUIVALENT, 2 IN 1 DAY
     Route: 048

REACTIONS (4)
  - Lung opacity [Unknown]
  - Pyrexia [Recovered/Resolved]
  - Hypoxia [Recovered/Resolved]
  - Pneumonia [Recovered/Resolved]

NARRATIVE: CASE EVENT DATE: 20191008
